FAERS Safety Report 17854584 (Version 2)
Quarter: 2020Q2

REPORT INFORMATION
  Report Type: Spontaneous
  Country: US (occurrence: US)
  Receive Date: 20200603
  Receipt Date: 20200615
  Transmission Date: 20200714
  Serious: Yes (Death)
  Sender: FDA-Public Use
  Company Number: US-WEST THERAPEUTIC DEVELOPMENT-2020WTD00017

PATIENT
  Sex: Female
  Weight: 100.23 kg

DRUGS (4)
  1. SUBSYS [Suspect]
     Active Substance: FENTANYL
     Indication: PAIN
     Dosage: 200 ?G, 6X/DAY (EVERY 4 HOURS) AS NEEDED
     Route: 060
     Dates: start: 20180619, end: 2018
  2. SUBSYS [Suspect]
     Active Substance: FENTANYL
     Indication: PAIN
     Dosage: 100 ?G, 6X/DAY (EVERY 4 HOURS) AS NEEDED
     Route: 060
     Dates: end: 2018
  3. DILAUDID [Concomitant]
     Active Substance: HYDROMORPHONE HYDROCHLORIDE
  4. FENTANYL. [Concomitant]
     Active Substance: FENTANYL

REACTIONS (1)
  - Uterine cancer [Fatal]
